FAERS Safety Report 14579412 (Version 1)
Quarter: 2018Q1

REPORT INFORMATION
  Report Type: Spontaneous
  Country: US (occurrence: US)
  Receive Date: 20180227
  Receipt Date: 20180227
  Transmission Date: 20180509
  Serious: No
  Sender: FDA-Public Use
  Company Number: US-ELI_LILLY_AND_COMPANY-US201802009865

PATIENT
  Age: 47 Year
  Sex: Female

DRUGS (3)
  1. BASAGLAR [Suspect]
     Active Substance: INSULIN GLARGINE
     Indication: DIABETES MELLITUS
     Dosage: 2 U, UNKNOWN
     Route: 058
     Dates: start: 20180201
  2. BASAGLAR [Suspect]
     Active Substance: INSULIN GLARGINE
     Dosage: 20 U, EACH MORNING
     Route: 058
     Dates: start: 20180221
  3. BASAGLAR [Suspect]
     Active Substance: INSULIN GLARGINE
     Dosage: 18 U, UNKNOWN
     Route: 058

REACTIONS (3)
  - Nausea [Recovering/Resolving]
  - Injection site pain [Recovered/Resolved]
  - Fatigue [Recovering/Resolving]

NARRATIVE: CASE EVENT DATE: 20180221
